FAERS Safety Report 5205825-0 (Version None)
Quarter: 2007Q1

REPORT INFORMATION
  Report Type: 
  Country: None (occurrence: None)
  Receive Date: 20070105
  Receipt Date: 20070105
  Transmission Date: 20070707
  Serious: Yes (Other)
  Sender: FDA-Public Use
  Company Number: None

PATIENT
  Age: 56 Year
  Sex: Female
  Weight: 117.9352 kg

DRUGS (1)
  1. CEPHALEXIN [Suspect]
     Indication: LOCALISED INFECTION
     Dosage: 1 EVERY 6 HOURS PO
     Route: 048

REACTIONS (4)
  - DECREASED APPETITE [None]
  - DIARRHOEA [None]
  - STOMACH DISCOMFORT [None]
  - VAGINAL HAEMORRHAGE [None]
